FAERS Safety Report 8487795-5 (Version None)
Quarter: 2012Q3

REPORT INFORMATION
  Report Type: 
  Country: None (occurrence: None)
  Receive Date: 20120705
  Receipt Date: 20120629
  Transmission Date: 20120928
  Serious: Yes (Hospitalization)
  Sender: FDA-Public Use
  Company Number: BR-PFIZER INC-2012144614

PATIENT
  Age: 60 Year
  Sex: Male
  Weight: 69 kg

DRUGS (8)
  1. ATORVASTATIN CALCIUM [Concomitant]
     Dosage: 40 MG, 1X/DAY
  2. CLONAZEPAM [Concomitant]
     Dosage: ONCE AT NIGHT
  3. INDAPAMIDE [Concomitant]
     Dosage: 2.5 MG, 1X/DAY
  4. MORPHINE SULFATE [Concomitant]
     Dosage: 10 MG, EVERY 4 HOURS
  5. SUTENT [Suspect]
     Indication: RENAL CELL CARCINOMA
     Dosage: 50 MG, ONCE DAILY CYCLE 4 PER 2
     Route: 048
     Dates: start: 20120602
  6. VITERGAN [Concomitant]
     Dosage: ONCE AT NIGHT
  7. METOPROLOL SUCCINATE [Concomitant]
     Dosage: 50 MG, 1X/DAY
  8. HENGER [Concomitant]
     Indication: SUPPLEMENTATION THERAPY

REACTIONS (10)
  - SKIN EXFOLIATION [None]
  - YELLOW SKIN [None]
  - DECREASED APPETITE [None]
  - RESPIRATORY DISORDER [None]
  - TONGUE DISCOLOURATION [None]
  - NAUSEA [None]
  - BLISTER [None]
  - PAIN IN EXTREMITY [None]
  - TONGUE DRY [None]
  - HYPOPHAGIA [None]
